FAERS Safety Report 9713965 (Version 1)
Quarter: 2013Q4

REPORT INFORMATION
  Report Type: Spontaneous
  Country: US (occurrence: US)
  Receive Date: 20131126
  Receipt Date: 20131126
  Transmission Date: 20140711
  Serious: No
  Sender: FDA-Public Use
  Company Number: US-GILEAD-2008-0018325

PATIENT
  Age: 65 Year
  Sex: Female
  Weight: 72.57 kg

DRUGS (15)
  1. LETAIRIS [Suspect]
     Indication: PULMONARY ARTERIAL HYPERTENSION
     Route: 048
     Dates: start: 20080903
  2. FUROSEMIDE [Concomitant]
  3. ISOSORBIDE [Concomitant]
  4. DYAZIDE [Concomitant]
  5. NORVASC [Concomitant]
  6. ADVAIR [Concomitant]
  7. ALBUTEROL [Concomitant]
  8. COMBIVENT [Concomitant]
  9. SINGULAR [Concomitant]
  10. BABY ASPIRIN [Concomitant]
  11. ARIMIDEX [Concomitant]
  12. SODIUM BICARBONATE [Concomitant]
  13. BACLOFEN [Concomitant]
  14. IRON [Concomitant]
  15. RENAGEL [Concomitant]

REACTIONS (2)
  - Dyspnoea [None]
  - Fluid retention [None]
